FAERS Safety Report 12270659 (Version 2)
Quarter: 2018Q1

REPORT INFORMATION
  Report Type: Spontaneous
  Country: US (occurrence: US)
  Receive Date: 20160415
  Receipt Date: 20180314
  Transmission Date: 20180508
  Serious: No
  Sender: FDA-Public Use
  Company Number: US-PFIZER INC-2016171917

PATIENT
  Age: 96 Year
  Sex: Female
  Weight: 54.43 kg

DRUGS (1)
  1. ADVIL PM [Suspect]
     Active Substance: DIPHENHYDRAMINE CITRATE\IBUPROFEN
     Dosage: UNK

REACTIONS (3)
  - Product selection error [Unknown]
  - Poor quality sleep [Unknown]
  - Malaise [Unknown]
